FAERS Safety Report 25764351 (Version 1)
Quarter: 2025Q3

REPORT INFORMATION
  Report Type: Spontaneous
  Country: US (occurrence: US)
  Receive Date: 20250905
  Receipt Date: 20250905
  Transmission Date: 20251021
  Serious: No
  Sender: DOMPE FARMACEUTICI
  Company Number: US-FARMAPROD-202412-4259

PATIENT
  Sex: Female

DRUGS (10)
  1. OXERVATE [Suspect]
     Active Substance: CENEGERMIN-BKBJ
     Indication: Neurotrophic keratopathy
     Route: 047
     Dates: start: 20241210
  2. OXERVATE [Suspect]
     Active Substance: CENEGERMIN-BKBJ
  3. VITAMIN D3 [Concomitant]
     Active Substance: CHOLECALCIFEROL
  4. FISH OIL [Concomitant]
     Active Substance: FISH OIL
  5. OMEPRAZOLE [Concomitant]
     Active Substance: OMEPRAZOLE
  6. ROSUVASTATIN CALCIUM [Concomitant]
     Active Substance: ROSUVASTATIN CALCIUM
  7. LOSARTAN POTASSIUM [Concomitant]
     Active Substance: LOSARTAN POTASSIUM
  8. METFORMIN HYDROCHLORIDE [Concomitant]
     Active Substance: METFORMIN HYDROCHLORIDE
  9. LEVOTHYROXINE SODIUM [Concomitant]
     Active Substance: LEVOTHYROXINE SODIUM
  10. COENZYME Q10 [Concomitant]
     Active Substance: DIETARY SUPPLEMENT\UBIDECARENONE

REACTIONS (3)
  - Eye pain [Recovering/Resolving]
  - Ocular discomfort [Recovering/Resolving]
  - Photophobia [Recovering/Resolving]
